FAERS Safety Report 9737942 (Version 1)
Quarter: 2013Q4

REPORT INFORMATION
  Report Type: Spontaneous
  Country: US (occurrence: US)
  Receive Date: 20131208
  Receipt Date: 20131208
  Transmission Date: 20140711
  Serious: No
  Sender: FDA-Public Use
  Company Number: -SAAVPROD-RENA-1001951

PATIENT
  Age: 67 Year
  Sex: Female

DRUGS (1)
  1. SEVELAMER CARBONATE [Suspect]
     Indication: HYPERPHOSPHATAEMIA
     Dosage: 8 G, QD (TWO WITH MEALS AND SNACKS)
     Route: 065

REACTIONS (2)
  - Hyperphosphataemia [Unknown]
  - Constipation [Unknown]
